FAERS Safety Report 24324179 (Version 1)
Quarter: 2024Q3

REPORT INFORMATION
  Report Type: Spontaneous
  Country: US (occurrence: US)
  Receive Date: 20240916
  Receipt Date: 20240916
  Transmission Date: 20241016
  Serious: Yes (Other)
  Sender: SANOFI AVENTIS
  Company Number: US-SA-2024SA266603

PATIENT
  Sex: Male
  Weight: 100.23 kg

DRUGS (4)
  1. DUPIXENT [Suspect]
     Active Substance: DUPILUMAB
     Indication: Asthma
     Dosage: 300 MG, QOW
     Route: 058
  2. ALLOPURINOL [Concomitant]
     Active Substance: ALLOPURINOL
  3. ALBUTEROL SULFATE [Concomitant]
     Active Substance: ALBUTEROL SULFATE
  4. CLOMID [Concomitant]
     Active Substance: CLOMIPHENE CITRATE

REACTIONS (5)
  - Cataract [Unknown]
  - Vision blurred [Unknown]
  - Skin irritation [Unknown]
  - Gout [Unknown]
  - Erythema [Unknown]

NARRATIVE: CASE EVENT DATE: 20240101
